FAERS Safety Report 7352381-7 (Version None)
Quarter: 2011Q1

REPORT INFORMATION
  Report Type: 
  Country: None (occurrence: None)
  Receive Date: 20110309
  Receipt Date: 20110309
  Transmission Date: 20110831
  Serious: No
  Sender: FDA-Public Use
  Company Number: None

PATIENT
  Sex: Female
  Weight: 68.0396 kg

DRUGS (1)
  1. CIPRO [Suspect]

REACTIONS (8)
  - PAIN [None]
  - IMPAIRED WORK ABILITY [None]
  - NEUROPATHY PERIPHERAL [None]
  - PHOTOPHOBIA [None]
  - FIBROMYALGIA [None]
  - FATIGUE [None]
  - MENTAL DISORDER [None]
  - FACTITIOUS DISORDER [None]
